FAERS Safety Report 19989637 (Version 6)
Quarter: 2021Q4

REPORT INFORMATION
  Report Type: Spontaneous
  Country: US (occurrence: US)
  Receive Date: 20211025
  Receipt Date: 20211123
  Transmission Date: 20220303
  Serious: Yes (Other)
  Sender: FDA-Public Use
  Company Number: US-ORGANON-O2110USA001902

PATIENT
  Sex: Female
  Weight: 93.424 kg

DRUGS (1)
  1. NEXPLANON [Suspect]
     Active Substance: ETONOGESTREL
     Indication: Contraception
     Dosage: 1 IMPLANT, EVERY 3 YEARS, LEFT ARM
     Route: 062
     Dates: start: 20200521

REACTIONS (12)
  - Pregnancy with implant contraceptive [Not Recovered/Not Resolved]
  - Device expulsion [Not Recovered/Not Resolved]
  - Device expulsion [Not Recovered/Not Resolved]
  - Unintended pregnancy [Not Recovered/Not Resolved]
  - Implant site infection [Unknown]
  - Implant site pain [Unknown]
  - Implant site inflammation [Unknown]
  - Implant site erythema [Unknown]
  - Complication associated with device [Not Recovered/Not Resolved]
  - Complication of device removal [Not Recovered/Not Resolved]
  - Wrong technique in device usage process [Unknown]
  - Product dose omission issue [Unknown]

NARRATIVE: CASE EVENT DATE: 20200101
